FAERS Safety Report 12726599 (Version 1)
Quarter: 2016Q3

REPORT INFORMATION
  Report Type: Spontaneous
  Country: US (occurrence: US)
  Receive Date: 20160908
  Receipt Date: 20160908
  Transmission Date: 20161109
  Serious: No
  Sender: FDA-Public Use
  Company Number: US-TEVA-676107USA

PATIENT
  Sex: Female

DRUGS (3)
  1. SINEMET [Concomitant]
     Active Substance: CARBIDOPA\LEVODOPA
     Dosage: 6  DAILY;
  2. AZILECT [Suspect]
     Active Substance: RASAGILINE MESYLATE
     Dates: start: 2014, end: 201605
  3. NUEDEXTA [Concomitant]
     Active Substance: DEXTROMETHORPHAN HYDROBROMIDE\QUINIDINE SULFATE
     Indication: CRYING

REACTIONS (2)
  - Fall [Not Recovered/Not Resolved]
  - Crying [Unknown]
